FAERS Safety Report 9985049 (Version 1)
Quarter: 2014Q1

REPORT INFORMATION
  Report Type: Spontaneous
  Country: FR (occurrence: FR)
  Receive Date: 20140307
  Receipt Date: 20140307
  Transmission Date: 20141002
  Serious: Yes (Hospitalization)
  Sender: FDA-Public Use
  Company Number: FR-B.I. PHARMACEUTICALS,INC./RIDGEFIELD-2014-BI-09146FF

PATIENT
  Age: 90 Year
  Sex: Male

DRUGS (15)
  1. PRADAXA [Suspect]
     Indication: ATRIAL FIBRILLATION
     Dosage: 220 MG
     Route: 048
     Dates: end: 20131217
  2. CETIRIZINE [Concomitant]
     Dosage: 10 MG
     Route: 048
     Dates: end: 20131217
  3. OXYNORM 5 MG [Concomitant]
     Dosage: 15 MG
     Route: 048
  4. OXYCONTIN ER 5 MG [Concomitant]
     Dosage: 30 MG
     Route: 048
  5. TRANSIPEG [Concomitant]
     Route: 048
     Dates: end: 20131217
  6. MECIR ER [Concomitant]
     Dosage: 0.4 MG
     Route: 048
  7. ATARAX [Concomitant]
     Route: 048
     Dates: end: 20131217
  8. SPRIRIVA [Concomitant]
     Route: 055
     Dates: end: 20131217
  9. SERETIDE [Concomitant]
     Route: 055
     Dates: end: 20131217
  10. LYRICA [Concomitant]
     Dosage: 50 MG
     Route: 048
     Dates: end: 20131217
  11. LASILIX SPECIAL [Concomitant]
     Dosage: 250 MG
     Route: 048
     Dates: end: 20131217
  12. INEXIUM [Concomitant]
     Dosage: 40 MG
     Route: 048
     Dates: end: 20131217
  13. SPECIAFOLDINE [Concomitant]
     Dosage: 5 MG
     Route: 048
     Dates: end: 20131217
  14. FUMAFER [Concomitant]
     Dosage: 66 MG
     Route: 048
     Dates: end: 20131217
  15. ALTEIS [Concomitant]
     Dosage: 20 MG
     Route: 048
     Dates: end: 20131217

REACTIONS (2)
  - Acute coronary syndrome [Recovered/Resolved]
  - Haemorrhage [Recovered/Resolved]
